FAERS Safety Report 6006084-1 (Version None)
Quarter: 2008Q4

REPORT INFORMATION
  Report Type: 
  Country: None (occurrence: None)
  Receive Date: 20081217
  Receipt Date: 20081204
  Transmission Date: 20090506
  Serious: Yes (Other)
  Sender: FDA-Public Use
  Company Number: JP-ELI_LILLY_AND_COMPANY-JP200811006307

PATIENT
  Sex: Female
  Weight: 39 kg

DRUGS (4)
  1. HUMATROPE [Suspect]
     Indication: GROWTH HORMONE DEFICIENCY
     Dosage: 1.1 MG, OTHER
     Route: 058
     Dates: start: 20080711, end: 20081120
  2. LEVOTHYROXINE SODIUM [Concomitant]
     Indication: THYROID HORMONE REPLACEMENT THERAPY
     Dosage: 80 UG, DAILY (1/D)
     Route: 048
     Dates: start: 20040414
  3. CORTONE [Concomitant]
     Indication: HORMONE REPLACEMENT THERAPY
     Dosage: UNK, UNK
     Route: 048
     Dates: start: 20040414
  4. DESMOPRESSIN ACETATE [Concomitant]
     Dosage: UNK, OTHER
     Route: 045
     Dates: start: 20040414

REACTIONS (2)
  - BLOOD ALKALINE PHOSPHATASE INCREASED [None]
  - CRANIOPHARYNGIOMA [None]
